FAERS Safety Report 7114063-6 (Version None)
Quarter: 2010Q4

REPORT INFORMATION
  Report Type: 
  Country: None (occurrence: None)
  Receive Date: 20101119
  Receipt Date: 20101109
  Transmission Date: 20110411
  Serious: Yes (Hospitalization, Other)
  Sender: FDA-Public Use
  Company Number: US-CELGENEUS-163-21880-10090840

PATIENT
  Sex: Male
  Weight: 95.794 kg

DRUGS (14)
  1. REVLIMID [Suspect]
     Indication: MULTIPLE MYELOMA
     Route: 048
     Dates: start: 20060912
  2. AREDIA [Concomitant]
     Route: 065
  3. AMIODARONE [Concomitant]
     Route: 065
  4. ASPIRIN [Concomitant]
     Route: 065
  5. ATENOLOL [Concomitant]
     Route: 065
  6. COUMADIN [Concomitant]
     Route: 065
  7. DIPHENOXYLATE [Concomitant]
     Route: 065
  8. DRONEDARONE HCL [Concomitant]
     Route: 065
  9. FLUTICASONE PROPIONATE [Concomitant]
     Route: 065
  10. FUROSEMIDE [Concomitant]
     Route: 065
  11. HYOSCYAMINE [Concomitant]
     Route: 065
  12. NEXIUM [Concomitant]
     Route: 065
  13. POTASSIUM CHLORIDE [Concomitant]
     Route: 065
  14. SPIRONOLACTONE [Concomitant]
     Route: 065

REACTIONS (9)
  - ARRHYTHMIA [None]
  - BRADYCARDIA [None]
  - DEPRESSION [None]
  - DYSPNOEA EXERTIONAL [None]
  - FALL [None]
  - FIBULA FRACTURE [None]
  - MALAISE [None]
  - OEDEMA PERIPHERAL [None]
  - RHINITIS SEASONAL [None]
